FAERS Safety Report 5814597-8 (Version None)
Quarter: 2008Q3

REPORT INFORMATION
  Report Type: 
  Country: None (occurrence: None)
  Receive Date: 20080718
  Receipt Date: 20071030
  Transmission Date: 20090109
  Serious: No
  Sender: FDA-Public Use
  Company Number: US-KINGPHARMUSA00001-K200701404

PATIENT

DRUGS (9)
  1. LEVOXYL [Suspect]
     Indication: HYPOTHYROIDISM
     Dosage: 75 MCG, QD
     Route: 048
     Dates: start: 20050101, end: 20070401
  2. LEVOXYL [Suspect]
     Dosage: 100 MCG, QD
     Route: 048
     Dates: start: 20070401, end: 20071001
  3. LEVOXYL [Suspect]
     Dosage: 200 MCG, QD, FIVE DAYS/WEEK
     Route: 048
     Dates: start: 20071001
  4. LEVOXYL [Suspect]
     Dosage: 400 MCG, QD, TUESDAYS AND THURSDAYS
     Route: 048
     Dates: start: 20071001
  5. TOPAMAX [Concomitant]
  6. LITHIUM [Concomitant]
  7. ALLERGY MEDICATION UNSPECIFIED [Concomitant]
  8. XANAX [Concomitant]
     Indication: SLEEP DISORDER
     Dosage: UNK, QHS
  9. LIPITOR [Concomitant]
     Dosage: 20 MG, QD

REACTIONS (2)
  - BLOOD PRESSURE INCREASED [None]
  - THYROID FUNCTION TEST ABNORMAL [None]
